FAERS Safety Report 4617287-2 (Version None)
Quarter: 2005Q1

REPORT INFORMATION
  Report Type: 
  Country: None (occurrence: None)
  Receive Date: 20050323
  Receipt Date: 20041015
  Transmission Date: 20050727
  Serious: Yes (Hospitalization, Disabling, Other)
  Sender: FDA-Public Use
  Company Number: DE-MERCK-0410DEU00507

PATIENT
  Age: 68 Year
  Sex: Female
  Weight: 72 kg

DRUGS (2)
  1. VIOXX [Suspect]
     Indication: RHEUMATOID ARTHRITIS
     Route: 048
     Dates: start: 20001201, end: 20041001
  2. [THERAPY UNSPECIFIED] [Concomitant]
     Route: 065

REACTIONS (19)
  - ANGINA PECTORIS [None]
  - ARRHYTHMIA [None]
  - BRONCHITIS ACUTE [None]
  - CEREBROVASCULAR ACCIDENT [None]
  - CORONARY ARTERY ATHEROSCLEROSIS [None]
  - DIABETES MELLITUS [None]
  - DIABETIC NEUROPATHY [None]
  - DIVERTICULUM [None]
  - EYE DISORDER [None]
  - HYPERURICAEMIA [None]
  - INFLUENZA LIKE ILLNESS [None]
  - OSTEOARTHRITIS [None]
  - OSTEOPOROSIS [None]
  - POST THROMBOTIC SYNDROME [None]
  - PULMONARY EMBOLISM [None]
  - SKIN ULCER [None]
  - SPINAL FRACTURE [None]
  - THROMBOPHLEBITIS SUPERFICIAL [None]
  - TOE DEFORMITY [None]
